FAERS Safety Report 8591654-7 (Version None)
Quarter: 2012Q3

REPORT INFORMATION
  Report Type: 
  Country: None (occurrence: None)
  Receive Date: 20120814
  Receipt Date: 20120807
  Transmission Date: 20120928
  Serious: Yes (Death)
  Sender: FDA-Public Use
  Company Number: CZ-CELGENEUS-217-21880-12080737

PATIENT
  Sex: Male

DRUGS (7)
  1. ADRIAMYCIN PFS [Concomitant]
     Route: 065
     Dates: start: 20120427
  2. NOVALGIN [Concomitant]
     Route: 065
     Dates: start: 20110501
  3. HERPESIN [Concomitant]
     Route: 065
     Dates: start: 20110501
  4. REVLIMID [Suspect]
     Dosage: 25 MILLIGRAM
     Route: 048
     Dates: start: 20120427, end: 20120712
  5. DEXAMETHASONE [Concomitant]
     Route: 065
     Dates: start: 20120427
  6. FRAXIPARIN [Concomitant]
     Route: 065
     Dates: start: 20120401
  7. DEXAMETHASONE [Concomitant]
     Route: 065
     Dates: start: 20120704

REACTIONS (2)
  - SEPSIS [None]
  - MULTIPLE MYELOMA [None]
